FAERS Safety Report 9260280 (Version 3)
Quarter: 2013Q3

REPORT INFORMATION
  Report Type: Spontaneous
  Country: US (occurrence: US)
  Receive Date: 20130429
  Receipt Date: 20130918
  Transmission Date: 20140515
  Serious: Yes (Disabling, Other)
  Sender: FDA-Public Use
  Company Number: US-BAYER-2013-052634

PATIENT
  Age: 72 Year
  Sex: Female

DRUGS (14)
  1. AVELOX [Suspect]
     Indication: BRONCHITIS
     Dosage: UNK
     Dates: start: 20110427, end: 20110502
  2. THEOPHYLLINE [Concomitant]
  3. XANTHINES [Concomitant]
  4. DULOXETINE [Concomitant]
  5. CLOZAPINE [Concomitant]
  6. METOCLOPRAMIDE [Concomitant]
  7. OMEPRAZOL [Concomitant]
  8. TIZANIDINE [Concomitant]
  9. METHOTREXATE [Concomitant]
  10. ANTIINFLAMMATORY/ANTIRHEUMATIC NON-STEROIDS [Concomitant]
  11. CYCLOSPORINE [Concomitant]
  12. WARFARIN [Concomitant]
  13. GLIBENCLAMIDE [Concomitant]
  14. ROPINIROLE [Concomitant]

REACTIONS (12)
  - Uveitis [None]
  - Photophobia [None]
  - Pigmentary glaucoma [None]
  - Intraocular pressure test abnormal [None]
  - Pigment dispersion syndrome [None]
  - Visual impairment [None]
  - Iris hypopigmentation [None]
  - Injury [None]
  - Anxiety [None]
  - Pain [None]
  - Emotional distress [None]
  - Anhedonia [None]
